FAERS Safety Report 10257280 (Version 3)
Quarter: 2014Q3

REPORT INFORMATION
  Report Type: Spontaneous
  Country: FR (occurrence: FR)
  Receive Date: 20140625
  Receipt Date: 20140710
  Transmission Date: 20150326
  Serious: Yes (Other)
  Sender: FDA-Public Use
  Company Number: FR-009507513-1406FRA003525

PATIENT
  Age: 80 Year
  Sex: Female

DRUGS (8)
  1. TRANSIPEG [Concomitant]
     Active Substance: POLYETHYLENE GLYCOL 3350
     Dosage: 5.9 G, QD
  2. CELESTENE 4MG/1ML [Suspect]
     Active Substance: BETAMETHASONE
     Indication: STOMATITIS
     Dosage: 24 MG, QD
     Route: 055
     Dates: start: 20140520, end: 20140604
  3. AUGMENTIN [Concomitant]
     Active Substance: AMOXICILLIN\CLAVULANATE POTASSIUM
     Dosage: 2 DF, BID
     Route: 048
     Dates: start: 20140522
  4. BETAHISTINE [Concomitant]
     Active Substance: BETAHISTINE
     Dosage: 24 MG, BID
     Route: 048
  5. COSOPT [Concomitant]
     Active Substance: DORZOLAMIDE HYDROCHLORIDE\TIMOLOL MALEATE
  6. ATURGYL (FENOXAZOLINE HYDROCHLORIDE) [Concomitant]
     Dosage: UNK
     Route: 065
  7. CELESTENE 8MG/2ML [Suspect]
     Active Substance: BETAMETHASONE
     Indication: STOMATITIS
  8. PANTOPRAZOLE [Concomitant]
     Active Substance: PANTOPRAZOLE SODIUM
     Indication: ABDOMINAL PAIN UPPER
     Dosage: 1 DF, QD
     Route: 048

REACTIONS (8)
  - Hypertension [Recovered/Resolved]
  - Poor quality sleep [Recovered/Resolved]
  - Pain in extremity [Unknown]
  - Tension [Recovered/Resolved]
  - Overdose [Recovering/Resolving]
  - Intentional product misuse [Unknown]
  - Prescribed overdose [Unknown]
  - Off label use [Unknown]

NARRATIVE: CASE EVENT DATE: 20140521
